FAERS Safety Report 4829899-1 (Version None)
Quarter: 2005Q4

REPORT INFORMATION
  Report Type: 
  Country: None (occurrence: None)
  Receive Date: 20051115
  Receipt Date: 20051104
  Transmission Date: 20060501
  Serious: Yes (Other)
  Sender: FDA-Public Use
  Company Number: 2005151552

PATIENT
  Age: 47 Year
  Sex: Female
  Weight: 58.0604 kg

DRUGS (4)
  1. CAMPTOSAR [Suspect]
     Indication: BREAST CANCER METASTATIC
     Dosage: UNK (INTERVAL: DAILY OTHER WEEK),
     Dates: start: 20041101
  2. AVASTIN [Concomitant]
  3. OMEPRAZOLE [Concomitant]
  4. CELEBREX [Concomitant]

REACTIONS (5)
  - ASCITES [None]
  - CONDITION AGGRAVATED [None]
  - CYTOLOGY ABNORMAL [None]
  - DIARRHOEA [None]
  - FATIGUE [None]
